FAERS Safety Report 14488699 (Version 1)
Quarter: 2018Q1

REPORT INFORMATION
  Report Type: Spontaneous
  Country: US (occurrence: US)
  Receive Date: 20180205
  Receipt Date: 20180205
  Transmission Date: 20180509
  Serious: No
  Sender: FDA-Public Use
  Company Number: US-BAUSCH-BL-2017-002210

PATIENT
  Age: 97 Year
  Sex: Female
  Weight: 52.21 kg

DRUGS (2)
  1. DILTIAZEM HCL ER CAPSULES [Suspect]
     Active Substance: DILTIAZEM HYDROCHLORIDE
     Dosage: AT DINNERTIME
     Route: 048
  2. DILTIAZEM HCL ER CAPSULES [Suspect]
     Active Substance: DILTIAZEM HYDROCHLORIDE
     Indication: PRODUCT USED FOR UNKNOWN INDICATION
     Dosage: IN MORNING
     Route: 048

REACTIONS (10)
  - Product quality issue [Unknown]
  - Tongue discomfort [Unknown]
  - Product taste abnormal [Recovered/Resolved]
  - Skin burning sensation [Unknown]
  - Vulvovaginal burning sensation [Unknown]
  - Flatulence [Unknown]
  - Secretion discharge [Recovered/Resolved]
  - Productive cough [Unknown]
  - Anorectal discomfort [Unknown]
  - Dry mouth [Unknown]

NARRATIVE: CASE EVENT DATE: 20170124
